FAERS Safety Report 7490034-5 (Version None)
Quarter: 2011Q2

REPORT INFORMATION
  Report Type: 
  Country: None (occurrence: None)
  Receive Date: 20110512
  Receipt Date: 20110427
  Transmission Date: 20111010
  Serious: Yes (Other)
  Sender: FDA-Public Use
  Company Number: AUR-APL-2011-01314

PATIENT
  Age: 63 Year
  Sex: Male

DRUGS (3)
  1. SIMVASTATIN [Suspect]
     Indication: PROPHYLAXIS
     Dosage: 40MG-DAILY-ORAL
     Route: 048
  2. SIMVASTATIN [Suspect]
     Indication: TRANSIENT ISCHAEMIC ATTACK
     Dosage: 40MG-DAILY-ORAL
     Route: 048
  3. ASPIRIN AND DIPYRIDAMOLE [Concomitant]

REACTIONS (2)
  - TENDON RUPTURE [None]
  - INJURY [None]
